FAERS Safety Report 9637697 (Version 2)
Quarter: 2013Q4

REPORT INFORMATION
  Report Type: Spontaneous
  Country: PT (occurrence: PT)
  Receive Date: 20131022
  Receipt Date: 20131024
  Transmission Date: 20140711
  Serious: Yes (Death, Hospitalization)
  Sender: FDA-Public Use
  Company Number: PT-B.I. PHARMACEUTICALS,INC./RIDGEFIELD-2013-BI-33628PO

PATIENT
  Age: 54 Year
  Sex: Male
  Weight: 91 kg

DRUGS (6)
  1. PRADAXA [Suspect]
     Indication: ATRIAL FIBRILLATION
     Dosage: 220 MG
     Route: 048
     Dates: start: 20130113
  2. BISOPROLOL [Concomitant]
     Dosage: 20 MG
  3. ADALAT [Concomitant]
  4. EUCREAS / VILDAGLIPTIN+METFORMIN HYDROCHLORIDE [Concomitant]
  5. LOSARTAN+HYDROCHLOROTHIAZIDE [Concomitant]
  6. SIMVASTATIN [Concomitant]

REACTIONS (1)
  - Ischaemic stroke [Fatal]
